FAERS Safety Report 19137581 (Version 1)
Quarter: 2021Q2

REPORT INFORMATION
  Report Type: Spontaneous
  Country: FR (occurrence: FR)
  Receive Date: 20210415
  Receipt Date: 20210415
  Transmission Date: 20210717
  Serious: Yes (Hospitalization)
  Sender: FDA-Public Use
  Company Number: FR-ROCHE-2807708

PATIENT
  Age: 54 Year
  Sex: Male
  Weight: 58.4 kg

DRUGS (5)
  1. PREGABALINE [Suspect]
     Active Substance: PREGABALIN
     Indication: NEURALGIA
     Route: 048
  2. RIVOTRIL [Suspect]
     Active Substance: CLONAZEPAM
     Indication: DEPRESSION
     Dosage: QUADRISIS TABLET
     Route: 048
  3. DULOXETINE. [Suspect]
     Active Substance: DULOXETINE
     Indication: DEPRESSION
     Route: 048
  4. AMISULPRIDE [Suspect]
     Active Substance: AMISULPRIDE
     Indication: SLEEP DISORDER
     Route: 065
  5. TAMSULOSINE EG [Suspect]
     Active Substance: TAMSULOSIN HYDROCHLORIDE
     Indication: PRODUCT USED FOR UNKNOWN INDICATION
     Route: 048

REACTIONS (1)
  - Orthostatic hypotension [Recovered/Resolved]

NARRATIVE: CASE EVENT DATE: 20200511
